FAERS Safety Report 18881471 (Version 3)
Quarter: 2021Q2

REPORT INFORMATION
  Report Type: Spontaneous
  Country: None (occurrence: US)
  Receive Date: 20210211
  Receipt Date: 20210420
  Transmission Date: 20210717
  Serious: Yes (Other)
  Sender: FDA-Public Use
  Company Number: US-SA-2021SA024188

PATIENT
  Age: 74 Year
  Sex: Male

DRUGS (1)
  1. DOCETAXEL. [Suspect]
     Active Substance: DOCETAXEL
     Indication: SMALL CELL LUNG CANCER
     Dosage: 75 MG/M2, Q3W FOR 1 HOUR

REACTIONS (3)
  - Pulmonary mass [Unknown]
  - Lung adenocarcinoma [Unknown]
  - Malignant neoplasm of unknown primary site [Unknown]
